FAERS Safety Report 6856201 (Version 4)
Quarter: 2015Q2

REPORT INFORMATION
  Report Type: Spontaneous
  Country: US (occurrence: US)
  Receive Date: 20081217
  Receipt Date: 20150610
  Transmission Date: 20150821
  Serious: Yes (Other)
  Sender: FDA-Public Use
  Company Number: US-ASTRAZENECA-2007UW25314

PATIENT
  Age: 84 Year
  Sex: Male
  Weight: 70.8 kg

DRUGS (36)
  1. NEXIUM [Suspect]
     Active Substance: ESOMEPRAZOLE MAGNESIUM
     Indication: DYSPEPSIA
     Route: 048
     Dates: start: 2005, end: 2010
  2. NEXIUM [Suspect]
     Active Substance: ESOMEPRAZOLE MAGNESIUM
     Indication: DYSPEPSIA
     Dosage: AS NEEDED
     Route: 048
  3. NEXIUM [Suspect]
     Active Substance: ESOMEPRAZOLE MAGNESIUM
     Indication: ABDOMINAL DISCOMFORT
     Dosage: AS NEEDED
     Route: 048
  4. PRILOSEC [Suspect]
     Active Substance: OMEPRAZOLE MAGNESIUM
     Indication: DYSPEPSIA
     Route: 048
  5. NEXIUM [Suspect]
     Active Substance: ESOMEPRAZOLE MAGNESIUM
     Indication: GASTROOESOPHAGEAL REFLUX DISEASE
     Route: 048
     Dates: start: 2005, end: 2010
  6. CRESTOR [Suspect]
     Active Substance: ROSUVASTATIN CALCIUM
     Indication: BLOOD CHOLESTEROL INCREASED
     Route: 048
  7. PRILOSEC [Suspect]
     Active Substance: OMEPRAZOLE MAGNESIUM
     Indication: DYSPEPSIA
     Dosage: AS NEEDED
     Route: 048
  8. VITAMIN D [Concomitant]
     Active Substance: CHOLECALCIFEROL
  9. NEXIUM [Suspect]
     Active Substance: ESOMEPRAZOLE MAGNESIUM
     Indication: GASTROOESOPHAGEAL REFLUX DISEASE
     Dosage: AS NEEDED
     Route: 048
  10. NEXIUM [Suspect]
     Active Substance: ESOMEPRAZOLE MAGNESIUM
     Indication: GASTROOESOPHAGEAL REFLUX DISEASE
     Route: 048
  11. NEXIUM [Suspect]
     Active Substance: ESOMEPRAZOLE MAGNESIUM
     Indication: GASTROOESOPHAGEAL REFLUX DISEASE
     Route: 048
     Dates: start: 2001
  12. NEXIUM [Suspect]
     Active Substance: ESOMEPRAZOLE MAGNESIUM
     Indication: GASTROOESOPHAGEAL REFLUX DISEASE
     Route: 048
     Dates: start: 2005, end: 2010
  13. NEXIUM [Suspect]
     Active Substance: ESOMEPRAZOLE MAGNESIUM
     Indication: ABDOMINAL DISCOMFORT
     Route: 048
     Dates: start: 2005, end: 2010
  14. NEXIUM [Suspect]
     Active Substance: ESOMEPRAZOLE MAGNESIUM
     Indication: DYSPEPSIA
     Route: 048
  15. NEXIUM [Suspect]
     Active Substance: ESOMEPRAZOLE MAGNESIUM
     Indication: ABDOMINAL DISCOMFORT
     Route: 048
  16. ZESTORETIC [Suspect]
     Active Substance: HYDROCHLOROTHIAZIDE\LISINOPRIL
     Indication: HYPERTENSION
     Dosage: 10/12.5MG
     Route: 048
     Dates: start: 2004
  17. COUMADIN [Concomitant]
     Active Substance: WARFARIN SODIUM
     Indication: ATRIAL FIBRILLATION
  18. ZEMPLAR [Concomitant]
     Active Substance: PARICALCITOL
     Indication: RENAL DISORDER
  19. NEXIUM [Suspect]
     Active Substance: ESOMEPRAZOLE MAGNESIUM
     Indication: DYSPEPSIA
     Route: 048
     Dates: start: 2001
  20. NEXIUM [Suspect]
     Active Substance: ESOMEPRAZOLE MAGNESIUM
     Indication: GASTROOESOPHAGEAL REFLUX DISEASE
     Route: 048
  21. PRILOSEC [Suspect]
     Active Substance: OMEPRAZOLE MAGNESIUM
     Indication: GASTROOESOPHAGEAL REFLUX DISEASE
     Dosage: AS NEEDED
     Route: 048
  22. ALTACE [Concomitant]
     Active Substance: RAMIPRIL
  23. DIOVAN [Concomitant]
     Active Substance: VALSARTAN
     Indication: HYPERTENSION
  24. NEXIUM [Suspect]
     Active Substance: ESOMEPRAZOLE MAGNESIUM
     Indication: GASTROOESOPHAGEAL REFLUX DISEASE
     Route: 048
     Dates: start: 2001
  25. CARDIZEM [Concomitant]
     Active Substance: DILTIAZEM HYDROCHLORIDE
     Indication: HYPERTENSION
  26. RED YEAST RICE [Concomitant]
     Active Substance: DIETARY SUPPLEMENT
     Indication: SUPPLEMENTATION THERAPY
  27. NEXIUM [Suspect]
     Active Substance: ESOMEPRAZOLE MAGNESIUM
     Indication: GASTROOESOPHAGEAL REFLUX DISEASE
     Dosage: AS NEEDED
     Route: 048
  28. CRESTOR [Suspect]
     Active Substance: ROSUVASTATIN CALCIUM
     Indication: BLOOD CHOLESTEROL INCREASED
     Route: 048
  29. PRILOSEC OTC [Suspect]
     Active Substance: OMEPRAZOLE MAGNESIUM
     Indication: GASTROOESOPHAGEAL REFLUX DISEASE
     Route: 048
  30. PRILOSEC OTC [Suspect]
     Active Substance: OMEPRAZOLE MAGNESIUM
     Indication: DYSPEPSIA
     Route: 048
  31. STEROID [Concomitant]
     Active Substance: UNSPECIFIED INGREDIENT
  32. DAILY VITAMINS [Concomitant]
  33. NEXIUM [Suspect]
     Active Substance: ESOMEPRAZOLE MAGNESIUM
     Indication: ABDOMINAL DISCOMFORT
     Route: 048
     Dates: start: 2001
  34. PRILOSEC [Suspect]
     Active Substance: OMEPRAZOLE MAGNESIUM
     Indication: GASTROOESOPHAGEAL REFLUX DISEASE
     Route: 048
  35. PRILOSEC OTC [Suspect]
     Active Substance: OMEPRAZOLE MAGNESIUM
     Indication: GASTROOESOPHAGEAL REFLUX DISEASE
     Route: 048
  36. NEXIUM [Suspect]
     Active Substance: ESOMEPRAZOLE MAGNESIUM
     Route: 065
     Dates: start: 2014

REACTIONS (17)
  - Gastrooesophageal reflux disease [Unknown]
  - Off label use [Unknown]
  - Dermatitis acneiform [Unknown]
  - Drug dose omission [Unknown]
  - Renal failure [Unknown]
  - Hypertension [Unknown]
  - Drug dependence [Unknown]
  - Abdominal discomfort [Unknown]
  - Drug intolerance [Unknown]
  - Renal disorder [Unknown]
  - Flushing [Unknown]
  - Dyspepsia [Unknown]
  - Pruritus [Unknown]
  - Intentional product misuse [Unknown]
  - Body height decreased [Unknown]
  - Abdominal pain upper [Unknown]
  - Drug ineffective [Unknown]

NARRATIVE: CASE EVENT DATE: 2004
